FAERS Safety Report 5204104-5 (Version None)
Quarter: 2007Q1

REPORT INFORMATION
  Report Type: 
  Country: None (occurrence: None)
  Receive Date: 20070110
  Receipt Date: 20051128
  Transmission Date: 20070707
  Serious: No
  Sender: FDA-Public Use
  Company Number: US-BRISTOL-MYERS SQUIBB COMPANY-13194675

PATIENT
  Age: 35 Year
  Sex: Female
  Weight: 95 kg

DRUGS (5)
  1. ABILIFY [Suspect]
     Indication: BIPOLAR DISORDER
     Dosage: ABILIFY: INITIALLY ON 10MG, THEN THE DOSE WAS DECREASED TO 5MG ONE MONTH AGO
  2. TRILEPTAL [Concomitant]
  3. LEXAPRO [Concomitant]
  4. RANITIDINE [Concomitant]
  5. DOSTINEX [Concomitant]

REACTIONS (1)
  - WEIGHT INCREASED [None]
